FAERS Safety Report 8131138-3 (Version None)
Quarter: 2012Q1

REPORT INFORMATION
  Report Type: 
  Country: None (occurrence: None)
  Receive Date: 20120213
  Receipt Date: 20120206
  Transmission Date: 20120608
  Serious: Yes (Hospitalization)
  Sender: FDA-Public Use
  Company Number: JP-SANOFI-AVENTIS-2011SA067812

PATIENT
  Age: 34 Year
  Sex: Female

DRUGS (1)
  1. LANTUS [Suspect]
     Dosage: FREQUENCY: IN THE MORNING DOSE:6 UNIT(S)
     Route: 065

REACTIONS (3)
  - PALLOR [None]
  - CHILLS [None]
  - MATERNAL EXPOSURE DURING PREGNANCY [None]
